FAERS Safety Report 20249398 (Version 1)
Quarter: 2021Q4

REPORT INFORMATION
  Report Type: Spontaneous
  Country: DE (occurrence: DE)
  Receive Date: 20211229
  Receipt Date: 20211229
  Transmission Date: 20220303
  Serious: Yes (Hospitalization)
  Sender: FDA-Public Use
  Company Number: DE-ADRED-07653-01

PATIENT
  Age: 78 Year
  Sex: Male
  Weight: 50 kg

DRUGS (9)
  1. PREDNISOLONE [Suspect]
     Active Substance: PREDNISOLONE
     Dosage: 10 MILLIGRAM DAILY; 5 MG, 1-0-1-0
  2. METAMIZOL [Concomitant]
     Active Substance: METAMIZOLE SODIUM
     Dosage: 2000 MILLIGRAM DAILY; 500 MG, 1-1-1-1
  3. BISOPROLOL [Concomitant]
     Active Substance: BISOPROLOL
     Dosage: 2.5 MILLIGRAM DAILY; 2.5 MG, 1-0-0-0
  4. RAMIPRIL [Concomitant]
     Active Substance: RAMIPRIL
     Dosage: 2.5 MILLIGRAM DAILY; 2.5 MG, 1-0-0-0
  5. ABIRATERONE [Concomitant]
     Active Substance: ABIRATERONE
     Dosage: 2 DOSAGE FORMS DAILY; 500 MG, 2-0-0-0
  6. TROSPIUM [Concomitant]
     Active Substance: TROSPIUM
     Dosage: 45 MILLIGRAM DAILY; 15 MG, 1-1-1-0
  7. Glycopyrroniumbromid/Indacaterol [Concomitant]
     Dosage: 1 DOSAGE FORMS DAILY; 1-0-0-0
     Route: 055
  8. ACETYLCYSTEINE [Concomitant]
     Active Substance: ACETYLCYSTEINE
     Dosage: 600 MILLIGRAM DAILY; 600 MG, 1-0-0-0
  9. TAPENTADOL [Concomitant]
     Active Substance: TAPENTADOL
     Dosage: 50 MILLIGRAM DAILY; 50 MG, 1-0-0-0

REACTIONS (7)
  - Vomiting [Unknown]
  - Syncope [Unknown]
  - General physical health deterioration [Unknown]
  - Dizziness [Unknown]
  - Anaemia [Unknown]
  - Urinary tract infection [Unknown]
  - Nausea [Unknown]
